FAERS Safety Report 4705337-4 (Version None)
Quarter: 2005Q2

REPORT INFORMATION
  Report Type: 
  Country: None (occurrence: None)
  Receive Date: 20050630
  Receipt Date: 20050630
  Transmission Date: 20051028
  Serious: Yes (Other)
  Sender: FDA-Public Use
  Company Number: None

PATIENT
  Age: 40 Year
  Sex: Male

DRUGS (2)
  1. PROFEN FORTE -(IVAX) [Suspect]
     Dates: start: 20050630
  2. PARAFON FORTE DSC-ORTHO MCNEIL [Suspect]
     Dates: start: 20050630

REACTIONS (2)
  - DRUG DISPENSING ERROR [None]
  - MEDICATION ERROR [None]
